FAERS Safety Report 9069285 (Version 1)
Quarter: 2013Q1

REPORT INFORMATION
  Report Type: Spontaneous
  Country: US (occurrence: US)
  Receive Date: 20130215
  Receipt Date: 20130215
  Transmission Date: 20140127
  Serious: Yes (Hospitalization)
  Sender: FDA-Public Use
  Company Number: US-SANOFI-AVENTIS-2013SA011137

PATIENT
  Age: 47 Year
  Sex: Female

DRUGS (2)
  1. AUBAGIO [Suspect]
     Indication: MULTIPLE SCLEROSIS
     Route: 048
     Dates: start: 201212
  2. AUBAGIO [Suspect]
     Indication: MULTIPLE SCLEROSIS
     Dosage: IN AM
     Route: 048
     Dates: start: 2013

REACTIONS (10)
  - Muscular weakness [Unknown]
  - Hypertension [Unknown]
  - Pain [Unknown]
  - Asthenia [Unknown]
  - Weight decreased [Unknown]
  - Constipation [Unknown]
  - Memory impairment [Unknown]
  - Acne [Unknown]
  - Paraesthesia [Unknown]
  - Insomnia [Unknown]
